FAERS Safety Report 9261184 (Version 3)
Quarter: 2013Q3

REPORT INFORMATION
  Report Type: Report from Study
  Country: CA (occurrence: CA)
  Receive Date: 20130429
  Receipt Date: 20130829
  Transmission Date: 20140515
  Serious: Yes (Hospitalization, Other)
  Sender: FDA-Public Use
  Company Number: PHHY2013CA023047

PATIENT
  Age: 72 Year
  Sex: Male

DRUGS (2)
  1. EXELON PATCH [Suspect]
     Indication: DEMENTIA ALZHEIMER^S TYPE
     Dosage: 9.5 MG, DAILY
     Route: 062
     Dates: start: 20130206
  2. EXELON PATCH [Suspect]
     Dosage: 9.5 MG, DAILY
     Route: 062
     Dates: start: 20130130

REACTIONS (8)
  - Gait apraxia [Unknown]
  - Parkinsonism [Unknown]
  - Mobility decreased [Unknown]
  - Dementia Alzheimer^s type [Unknown]
  - Faecal incontinence [Unknown]
  - Depression [Unknown]
  - Urinary incontinence [Not Recovered/Not Resolved]
  - Aggression [Unknown]
